FAERS Safety Report 23632534 (Version 1)
Quarter: 2024Q1

REPORT INFORMATION
  Report Type: Spontaneous
  Country: US (occurrence: US)
  Receive Date: 20240314
  Receipt Date: 20240314
  Transmission Date: 20240410
  Serious: No
  Sender: FDA-Public Use
  Company Number: US-TRIS PHARMA, INC.-24US011382

PATIENT

DRUGS (2)
  1. DYANAVEL XR [Suspect]
     Active Substance: AMPHETAMINE
     Indication: Product used for unknown indication
     Dosage: TITRATED UPTO 10 MILLIGRAM
  2. DYANAVEL XR [Suspect]
     Active Substance: AMPHETAMINE
     Dosage: UNK

REACTIONS (1)
  - Vasoconstriction [Recovered/Resolved]
